FAERS Safety Report 8123211-0 (Version None)
Quarter: 2012Q1

REPORT INFORMATION
  Report Type: 
  Country: None (occurrence: None)
  Receive Date: 20120208
  Receipt Date: 20120131
  Transmission Date: 20120608
  Serious: Yes (Other)
  Sender: FDA-Public Use
  Company Number: PHHY2012BR009323

PATIENT
  Sex: Male

DRUGS (10)
  1. QUETIAPINE [Suspect]
     Dosage: 50 MG, DAILY
     Route: 048
  2. SERTRALINE HYDROCHLORIDE [Suspect]
     Indication: DEPRESSION
     Dosage: 100 MG, DAILY
     Route: 048
  3. AMANTADINE HCL [Concomitant]
     Dosage: 300 MG, DAILY
  4. RIVASTIGMINE [Concomitant]
     Dosage: 3 MG, BID
     Route: 048
  5. LEVODOPA [Concomitant]
  6. LEVODOPA-BENSERAZIDE [Concomitant]
  7. RASAGILINE [Concomitant]
     Dosage: 1 MG, DAILY
  8. LEVODOPA-CARBIDOPA-ENTACAPONE [Concomitant]
     Dosage: 150 MG, 5 TIMES A DAY
  9. RIVASTIGMINE [Concomitant]
     Dosage: 1.5 MG, BID
     Route: 048
  10. ENTACAPONE [Concomitant]
     Dosage: 200 MG, 5 TIMES A DAY

REACTIONS (10)
  - CONFUSIONAL STATE [None]
  - TREMOR [None]
  - NAUSEA [None]
  - GENERAL PHYSICAL HEALTH DETERIORATION [None]
  - ABULIA [None]
  - HALLUCINATION, VISUAL [None]
  - VOMITING [None]
  - APATHY [None]
  - COGNITIVE DISORDER [None]
  - MOTOR DYSFUNCTION [None]
